FAERS Safety Report 18051391 (Version 2)
Quarter: 2020Q3

REPORT INFORMATION
  Report Type: Report from Study
  Country: GB (occurrence: GB)
  Receive Date: 20200721
  Receipt Date: 20200728
  Transmission Date: 20201103
  Serious: Yes (Other)
  Sender: FDA-Public Use
  Company Number: NVSC2020GB203783

PATIENT
  Sex: Male

DRUGS (1)
  1. HYRIMOZ [Suspect]
     Active Substance: ADALIMUMAB-ADAZ
     Indication: RHEUMATOID ARTHRITIS
     Dosage: 40 MG/ 0.8 ML, Q2W
     Route: 058
     Dates: start: 20200214

REACTIONS (5)
  - Joint swelling [Unknown]
  - Headache [Unknown]
  - Therapeutic response delayed [Unknown]
  - Decreased immune responsiveness [Unknown]
  - Musculoskeletal stiffness [Unknown]
